FAERS Safety Report 10048512 (Version 2)
Quarter: 2014Q2

REPORT INFORMATION
  Report Type: Report from Study
  Country: CA (occurrence: CA)
  Receive Date: 20140331
  Receipt Date: 20140501
  Transmission Date: 20141212
  Serious: Yes (Death, Hospitalization)
  Sender: FDA-Public Use
  Company Number: PHHY2014CA037359

PATIENT
  Age: 86 Year
  Sex: Male

DRUGS (2)
  1. SANDOSTATIN LAR [Suspect]
     Indication: CHRONIC LYMPHOCYTIC LEUKAEMIA
     Dosage: 20 MG, EVERY 4 WEEKS
     Route: 030
     Dates: start: 20140221
  2. SANDOSTATIN LAR [Suspect]
     Indication: OFF LABEL USE
     Dosage: 20 MG, EVERY 4 WEEKS
     Route: 030
     Dates: start: 20140327

REACTIONS (3)
  - Death [Fatal]
  - Malaise [Unknown]
  - Heart rate decreased [Unknown]
